FAERS Safety Report 25812227 (Version 1)
Quarter: 2025Q3

REPORT INFORMATION
  Report Type: Spontaneous
  Country: US (occurrence: None)
  Receive Date: 20250916
  Receipt Date: 20250916
  Transmission Date: 20251020
  Serious: Yes (unspecified)
  Sender: FDA-CTU
  Company Number: None

PATIENT
  Age: 42 Year
  Sex: Female
  Weight: 56.25 kg

DRUGS (5)
  1. .DELTA.9-TETRAHYDROCANNABINOLIC ACID\HERBALS [Suspect]
     Active Substance: .DELTA.9-TETRAHYDROCANNABINOLIC ACID\HERBALS
     Indication: Disturbance in attention
     Dosage: FREQUENCY : 3 TIMES A DAY;?
     Route: 055
     Dates: start: 20250728, end: 20250812
  2. .DELTA.9-TETRAHYDROCANNABINOLIC ACID\HERBALS [Suspect]
     Active Substance: .DELTA.9-TETRAHYDROCANNABINOLIC ACID\HERBALS
     Indication: Anxiety
  3. CANNABIDIOL\HERBALS\TETRAHYDROCANNABINOL UNSPECIFIED [Suspect]
     Active Substance: CANNABIDIOL\HERBALS\TETRAHYDROCANNABINOL UNSPECIFIED
     Indication: Disturbance in attention
  4. CANNABIDIOL\HERBALS\TETRAHYDROCANNABINOL UNSPECIFIED [Suspect]
     Active Substance: CANNABIDIOL\HERBALS\TETRAHYDROCANNABINOL UNSPECIFIED
     Indication: Sleep disorder
  5. HERBALS\TETRAHYDROCANNABINOL UNSPECIFIED [Suspect]
     Active Substance: HERBALS\TETRAHYDROCANNABINOL UNSPECIFIED

REACTIONS (11)
  - Product contamination chemical [None]
  - Decreased appetite [None]
  - Product label confusion [None]
  - Product outer packaging issue [None]
  - Hyperaesthesia [None]
  - Muscular weakness [None]
  - Respiratory depression [None]
  - Blood pressure fluctuation [None]
  - Cholinergic syndrome [None]
  - Cholinergic syndrome [None]
  - Asthenia [None]

NARRATIVE: CASE EVENT DATE: 20250728
